FAERS Safety Report 9994328 (Version 2)
Quarter: 2014Q2

REPORT INFORMATION
  Report Type: Spontaneous
  Country: US (occurrence: US)
  Receive Date: 20140311
  Receipt Date: 20140416
  Transmission Date: 20141212
  Serious: Yes (Hospitalization, Other)
  Sender: FDA-Public Use
  Company Number: US-AMGEN-USASP2014016219

PATIENT
  Age: 45 Year
  Sex: Male
  Weight: 108.48 kg

DRUGS (5)
  1. ENBREL [Suspect]
     Indication: PSORIASIS
     Dosage: 50 MG, QWK
     Route: 058
     Dates: start: 201212, end: 201402
  2. STELARA [Concomitant]
     Dosage: UNK
  3. HUMIRA [Concomitant]
     Dosage: UNK
  4. METOPROLOL SUCCINATE [Concomitant]
     Indication: BLOOD PRESSURE
     Dosage: 50 MG, QD
     Route: 048
  5. OXYCODONE [Concomitant]
     Indication: PAIN
     Dosage: 10 MG, AS NECESSARY
     Route: 048

REACTIONS (5)
  - Ear haemorrhage [Unknown]
  - Meningitis bacterial [Recovered/Resolved]
  - Ear infection [Unknown]
  - Sinus congestion [Unknown]
  - Nasopharyngitis [Unknown]
